FAERS Safety Report 7912546-X (Version None)
Quarter: 2011Q4

REPORT INFORMATION
  Report Type: 
  Country: None (occurrence: None)
  Receive Date: 20111114
  Receipt Date: 20111109
  Transmission Date: 20120403
  Serious: No
  Sender: FDA-Public Use
  Company Number: US-PFIZER INC-2011275078

PATIENT
  Sex: Male

DRUGS (5)
  1. ALAVERT [Suspect]
     Indication: RHINORRHOEA
  2. ALAVERT [Suspect]
     Indication: LACRIMATION INCREASED
  3. ALAVERT [Suspect]
     Indication: TYMPANIC MEMBRANE DISORDER
     Dosage: UNK, DAILY
     Dates: start: 20111104
  4. ALAVERT [Suspect]
     Indication: EYE PRURITUS
  5. ALAVERT [Suspect]
     Indication: SNEEZING

REACTIONS (1)
  - DRUG INEFFECTIVE [None]
